FAERS Safety Report 7743946-9 (Version None)
Quarter: 2011Q3

REPORT INFORMATION
  Report Type: 
  Country: None (occurrence: None)
  Receive Date: 20110912
  Receipt Date: 20110831
  Transmission Date: 20111222
  Serious: Yes (Hospitalization)
  Sender: FDA-Public Use
  Company Number: JP-GLAXOSMITHKLINE-B0744077A

PATIENT
  Sex: Female

DRUGS (5)
  1. LAMICTAL [Suspect]
     Indication: BIPOLAR II DISORDER
     Dosage: 25MG TWICE PER DAY
     Route: 048
     Dates: start: 20110617, end: 20110630
  2. ALPRAZOLAM [Concomitant]
     Indication: BIPOLAR II DISORDER
     Dosage: 2.4MG PER DAY
     Dates: start: 20110617, end: 20110630
  3. LAMICTAL [Suspect]
     Dosage: 25MG PER DAY
     Route: 048
     Dates: start: 20110701, end: 20110715
  4. LITHIUM CARBONATE [Concomitant]
     Indication: BIPOLAR II DISORDER
     Dosage: 300MG PER DAY
     Route: 048
     Dates: start: 20110617, end: 20110630
  5. DEPAKENE [Concomitant]
     Indication: BIPOLAR II DISORDER
     Dosage: 600MG PER DAY
     Route: 048
     Dates: start: 20110617, end: 20110630

REACTIONS (1)
  - ECZEMA [None]
